FAERS Safety Report 5375143-9 (Version None)
Quarter: 2007Q2

REPORT INFORMATION
  Report Type: 
  Country: None (occurrence: None)
  Receive Date: 20070629
  Receipt Date: 20061016
  Transmission Date: 20071010
  Serious: No
  Sender: FDA-Public Use
  Company Number: US-ASTRAZENECA-2006UW09489

PATIENT
  Age: 82 Year
  Sex: Male
  Weight: 74.8 kg

DRUGS (8)
  1. ZOLADEX [Suspect]
     Indication: PROSTATE CANCER
     Route: 058
     Dates: start: 20060314, end: 20060314
  2. ATACAND [Concomitant]
  3. TOPROL-XL [Concomitant]
  4. ASPIRIN [Concomitant]
  5. PROBENID [Concomitant]
  6. PRILOSEC [Concomitant]
  7. VYTORIN [Concomitant]
  8. FLOMAX [Concomitant]

REACTIONS (2)
  - STOMACH DISCOMFORT [None]
  - TINNITUS [None]
